FAERS Safety Report 6993196-9 (Version None)
Quarter: 2010Q3

REPORT INFORMATION
  Report Type: 
  Country: None (occurrence: None)
  Receive Date: 20100917
  Receipt Date: 20100312
  Transmission Date: 20110219
  Serious: Yes (Hospitalization)
  Sender: FDA-Public Use
  Company Number: US-ASTRAZENECA-2010SE11061

PATIENT
  Age: 38 Year
  Sex: Male

DRUGS (2)
  1. SEROQUEL XR [Suspect]
     Dosage: 300 MG ON DAY ONE
     Route: 048
     Dates: start: 20100301
  2. SEROQUEL XR [Suspect]
     Dosage: 6000 MG ON DAY TWO
     Route: 048
     Dates: start: 20100301

REACTIONS (1)
  - TACHYCARDIA [None]
